FAERS Safety Report 8007338-X (Version None)
Quarter: 2011Q4

REPORT INFORMATION
  Report Type: 
  Country: None (occurrence: None)
  Receive Date: 20111216
  Receipt Date: 20111202
  Transmission Date: 20120403
  Serious: Yes (Death, Hospitalization, Other)
  Sender: FDA-Public Use
  Company Number: 2011PROUSA00603

PATIENT
  Age: 70 Year
  Sex: Male
  Weight: 66.1344 kg

DRUGS (4)
  1. PROVENGE [Suspect]
     Indication: PROSTATE CANCER METASTATIC
     Dosage: 250 ML, SINGLE, INTRAVENOUS
     Dates: start: 20110203, end: 20110203
  2. PROVENGE [Suspect]
     Indication: PROSTATE CANCER METASTATIC
     Dosage: 250 ML, SINGLE, INTRAVENOUS
     Dates: start: 20110217, end: 20110217
  3. PROVENGE [Suspect]
     Indication: PROSTATE CANCER METASTATIC
     Dosage: 250 ML, SINGLE, INTRAVENOUS
     Dates: start: 20110120, end: 20110120
  4. RITALIN [Concomitant]

REACTIONS (3)
  - PROSTATE CANCER [None]
  - NEOPLASM PROGRESSION [None]
  - ADVERSE EVENT [None]
